FAERS Safety Report 16367961 (Version 1)
Quarter: 2019Q2

REPORT INFORMATION
  Report Type: Spontaneous
  Country: US (occurrence: US)
  Receive Date: 20190529
  Receipt Date: 20190529
  Transmission Date: 20190711
  Serious: Yes (Other)
  Sender: FDA-Public Use
  Company Number: US-MYLANLABS-2019M1050497

PATIENT
  Age: 7 Decade
  Sex: Male

DRUGS (1)
  1. ZOLEDRONIC ACID [Suspect]
     Active Substance: ZOLEDRONIC ACID
     Indication: PLASMA CELL MYELOMA
     Dosage: INFUSION EVERY 3 MONTHS
     Route: 050

REACTIONS (8)
  - Osteonecrosis of jaw [Recovered/Resolved]
  - Osteomyelitis [Recovering/Resolving]
  - Pain in jaw [Recovered/Resolved]
  - Facial pain [Recovered/Resolved]
  - Oroantral fistula [Recovered/Resolved]
  - Actinomycosis [Recovering/Resolving]
  - Blindness [Not Recovered/Not Resolved]
  - Headache [Recovered/Resolved]
